FAERS Safety Report 12599460 (Version 1)
Quarter: 2016Q3

REPORT INFORMATION
  Report Type: Spontaneous
  Country: US (occurrence: US)
  Receive Date: 20160727
  Receipt Date: 20160727
  Transmission Date: 20161109
  Serious: No
  Sender: FDA-Public Use
  Company Number: US-ACTELION-A-US2016-139509

PATIENT
  Age: 52 Year
  Sex: Female

DRUGS (3)
  1. DESONIDE. [Concomitant]
     Active Substance: DESONIDE
  2. ISTODAX [Concomitant]
     Active Substance: ROMIDEPSIN
  3. VALCHLOR [Suspect]
     Active Substance: MECHLORETHAMINE
     Indication: MYCOSIS FUNGOIDES
     Dosage: UNK
     Route: 061
     Dates: start: 20150518

REACTIONS (1)
  - Weight increased [Unknown]
